FAERS Safety Report 17223140 (Version 1)
Quarter: 2020Q1

REPORT INFORMATION
  Report Type: Report from Study
  Country: CA (occurrence: CA)
  Receive Date: 20200102
  Receipt Date: 20200102
  Transmission Date: 20200409
  Serious: Yes (Other)
  Sender: FDA-Public Use
  Company Number: CA-ORION CORPORATION ORION PHARMA-TREX2019-6192

PATIENT
  Age: 62 Year
  Sex: Male

DRUGS (7)
  1. LEFLUNOMIDE. [Suspect]
     Active Substance: LEFLUNOMIDE
     Indication: PRODUCT USED FOR UNKNOWN INDICATION
     Route: 065
  2. CIMZIA [Concomitant]
     Active Substance: CERTOLIZUMAB PEGOL
     Route: 058
  3. COSENTYX [Suspect]
     Active Substance: SECUKINUMAB
     Indication: PSORIATIC ARTHROPATHY
     Route: 058
  4. OTEZLA [Concomitant]
     Active Substance: APREMILAST
     Route: 065
  5. METHOTREXATE (TRADE NAME UNKNOWN) [Suspect]
     Active Substance: METHOTREXATE
     Indication: PRODUCT USED FOR UNKNOWN INDICATION
     Route: 065
  6. HUMIRA [Concomitant]
     Active Substance: ADALIMUMAB
     Route: 058
  7. NALTREXONE [Concomitant]
     Active Substance: NALTREXONE
     Route: 065

REACTIONS (18)
  - Drug ineffective [Unknown]
  - Depression [Unknown]
  - Arthralgia [Unknown]
  - Feeling abnormal [Unknown]
  - Malnutrition [Unknown]
  - Nausea [Unknown]
  - Abdominal discomfort [Unknown]
  - Chills [Unknown]
  - Dehydration [Unknown]
  - Dyspnoea [Unknown]
  - Flatulence [Unknown]
  - Headache [Unknown]
  - Muscle atrophy [Unknown]
  - Nasopharyngitis [Unknown]
  - Pneumonia [Unknown]
  - Cough [Unknown]
  - Fatigue [Unknown]
  - Diarrhoea [Unknown]
